APPROVED DRUG PRODUCT: SECONAL SODIUM
Active Ingredient: SECOBARBITAL SODIUM
Strength: 60MG
Dosage Form/Route: SUPPOSITORY;RECTAL
Application: A086530 | Product #002
Applicant: ELI LILLY AND CO
Approved: Approved Prior to Jan 1, 1982 | RLD: No | RS: No | Type: DISCN